FAERS Safety Report 4431680-2 (Version None)
Quarter: 2004Q3

REPORT INFORMATION
  Report Type: 
  Country: None (occurrence: None)
  Receive Date: 20040825
  Receipt Date: 20040818
  Transmission Date: 20050211
  Serious: Yes (Other)
  Sender: FDA-Public Use
  Company Number: PHNU2004DE02930

PATIENT
  Sex: Female

DRUGS (2)
  1. EXELON [Suspect]
     Indication: DEMENTIA
     Dosage: 6 MG/DAY
     Route: 048
  2. REMERGIL [Concomitant]
     Dates: start: 20040101, end: 20040101

REACTIONS (1)
  - LYMPHOPENIA [None]
